FAERS Safety Report 8331570-9 (Version None)
Quarter: 2012Q2

REPORT INFORMATION
  Report Type: 
  Country: None (occurrence: None)
  Receive Date: 20120502
  Receipt Date: 20120419
  Transmission Date: 20120825
  Serious: No
  Sender: FDA-Public Use
  Company Number: US-AMGEN-USASP2011048092

PATIENT
  Age: 58 Year
  Sex: Male

DRUGS (2)
  1. ENBREL [Suspect]
     Indication: PSORIATIC ARTHROPATHY
     Dosage: 50 MG, QWK
     Dates: start: 20101210, end: 20111201
  2. ENBREL [Suspect]
     Indication: PSORIASIS

REACTIONS (6)
  - BRONCHITIS BACTERIAL [None]
  - PNEUMONIA [None]
  - INJURY [None]
  - NASOPHARYNGITIS [None]
  - IMPAIRED HEALING [None]
  - PSORIATIC ARTHROPATHY [None]
